FAERS Safety Report 21573112 (Version 2)
Quarter: 2023Q4

REPORT INFORMATION
  Report Type: Report from Study
  Country: AR (occurrence: AR)
  Receive Date: 20221109
  Receipt Date: 20231004
  Transmission Date: 20240110
  Serious: Yes (Hospitalization, Other)
  Sender: FDA-Public Use
  Company Number: AR-JNJFOC-20221111812

PATIENT
  Age: 46 Year
  Sex: Male

DRUGS (10)
  1. REMICADE [Suspect]
     Active Substance: INFLIXIMAB
     Indication: Crohn^s disease
     Route: 041
     Dates: start: 20180201
  2. REMICADE [Suspect]
     Active Substance: INFLIXIMAB
     Route: 041
     Dates: start: 20230714
  3. REMICADE [Suspect]
     Active Substance: INFLIXIMAB
     Route: 041
     Dates: start: 20230823
  4. REMICADE [Suspect]
     Active Substance: INFLIXIMAB
     Dosage: INDUCTION DOSE
     Route: 041
     Dates: start: 20230712
  5. AMLODIPINE\VALSARTAN [Concomitant]
     Active Substance: AMLODIPINE\VALSARTAN
     Dosage: 5/160MG, HALF PILL
  6. LEVOTHYROXINE [Concomitant]
     Active Substance: LEVOTHYROXINE
     Dosage: 200MCG MONDAY WEDNESDAY AND FRIDAY, REST OF DAYS 175 MG DAILY
  7. PREDNISONE [Concomitant]
     Active Substance: PREDNISONE
     Dates: start: 20230808, end: 20230814
  8. PREDNISONE [Concomitant]
     Active Substance: PREDNISONE
     Dosage: LOWER DOSE TO 20 MG FROM 22-AUG-2023 TO 22-SEP-2023, LATER LOWER TO 10 MG UNTIL NEW INDICATION
     Dates: start: 20230815, end: 20230821
  9. BUDESONIDE [Concomitant]
     Active Substance: BUDESONIDE
     Dosage: APPLY 1 AMP AT 20H00.
  10. MESALAMINE [Concomitant]
     Active Substance: MESALAMINE

REACTIONS (3)
  - Papillary thyroid cancer [Recovered/Resolved]
  - Crohn^s disease [Recovering/Resolving]
  - Off label use [Unknown]

NARRATIVE: CASE EVENT DATE: 20211219
